FAERS Safety Report 23351743 (Version 1)
Quarter: 2023Q4

REPORT INFORMATION
  Report Type: Spontaneous
  Country: US (occurrence: US)
  Receive Date: 20231229
  Receipt Date: 20231229
  Transmission Date: 20240110
  Serious: Yes (Other)
  Sender: FDA-Public Use
  Company Number: US-JNJFOC-20231256144

PATIENT
  Age: 58 Year
  Sex: Female

DRUGS (2)
  1. ELMIRON [Suspect]
     Active Substance: PENTOSAN POLYSULFATE SODIUM
     Indication: Product used for unknown indication
     Route: 048
     Dates: start: 2005
  2. ELMIRON [Suspect]
     Active Substance: PENTOSAN POLYSULFATE SODIUM
     Route: 048
     Dates: start: 201909

REACTIONS (4)
  - Retinal dystrophy [Unknown]
  - Retinal disorder [Unknown]
  - Vitreous adhesions [Unknown]
  - Off label use [Unknown]

NARRATIVE: CASE EVENT DATE: 20190901
